FAERS Safety Report 18379627 (Version 3)
Quarter: 2020Q4

REPORT INFORMATION
  Report Type: Spontaneous
  Country: DE (occurrence: DE)
  Receive Date: 20201014
  Receipt Date: 20201120
  Transmission Date: 20210114
  Serious: Yes (Hospitalization, Other)
  Sender: FDA-Public Use
  Company Number: DE-TEVA-2020-DE-1838612

PATIENT
  Age: 12 Year
  Sex: Male
  Weight: 54 kg

DRUGS (1)
  1. METHYLPHENIDAT- HCL RATIOPHARM 36 MG RETARDTABLETTEN [Suspect]
     Active Substance: METHYLPHENIDATE HYDROCHLORIDE
     Indication: ATTENTION DEFICIT HYPERACTIVITY DISORDER
     Dosage: 36 MILLIGRAM DAILY;
     Route: 048
     Dates: start: 20200702, end: 20201011

REACTIONS (4)
  - Gait disturbance [Unknown]
  - Hyporeflexia [Unknown]
  - Chronic inflammatory demyelinating polyradiculoneuropathy [Not Recovered/Not Resolved]
  - Diplegia [Unknown]

NARRATIVE: CASE EVENT DATE: 2020
